FAERS Safety Report 9376424 (Version 1)
Quarter: 2013Q3

REPORT INFORMATION
  Report Type: Spontaneous
  Country: FI (occurrence: FI)
  Receive Date: 20130701
  Receipt Date: 20130701
  Transmission Date: 20140515
  Serious: Yes (Other)
  Sender: FDA-Public Use
  Company Number: FI-JNJFOC-20130617840

PATIENT
  Age: 0 None
  Sex: Female
  Weight: 2.46 kg

DRUGS (4)
  1. REMICADE [Suspect]
     Indication: JUVENILE IDIOPATHIC ARTHRITIS
     Route: 064
     Dates: start: 20130612
  2. REMICADE [Suspect]
     Indication: JUVENILE IDIOPATHIC ARTHRITIS
     Route: 064
     Dates: start: 20130410, end: 20130410
  3. REMICADE [Suspect]
     Indication: JUVENILE IDIOPATHIC ARTHRITIS
     Route: 064
     Dates: start: 2003, end: 20130227
  4. CORTISONE [Suspect]
     Indication: ARTHRALGIA
     Route: 050

REACTIONS (4)
  - Premature baby [Not Recovered/Not Resolved]
  - Yellow skin [Recovering/Resolving]
  - Blood glucose abnormal [Recovering/Resolving]
  - Foetal exposure during pregnancy [Recovering/Resolving]
